FAERS Safety Report 10516093 (Version 1)
Quarter: 2014Q4

REPORT INFORMATION
  Report Type: Spontaneous
  Country: AT (occurrence: None)
  Receive Date: 20141009
  Receipt Date: 20141009
  Transmission Date: 20150528
  Serious: Yes (Death)
  Sender: FDA-Public Use
  Company Number: COR_00099_2014

PATIENT

DRUGS (4)
  1. VINCRISTINE [Suspect]
     Active Substance: VINCRISTINE
     Indication: MATERNAL EXPOSURE DURING PREGNANCY
     Dosage: PER DAY ON DAY 1
     Route: 064
  2. ETOPOSIDE. [Suspect]
     Active Substance: ETOPOSIDE
     Indication: MATERNAL EXPOSURE DURING PREGNANCY
     Dosage: PER DAY ON DAYS 1-3
     Route: 064
  3. IFOSFAMIDE. [Suspect]
     Active Substance: IFOSFAMIDE
     Indication: MATERNAL EXPOSURE DURING PREGNANCY
     Dosage: PER DAY ON DAYS 1-3
     Route: 064
  4. DOXORUBICIN [Suspect]
     Active Substance: DOXORUBICIN
     Indication: MATERNAL EXPOSURE DURING PREGNANCY
     Dosage: PER DAY ON DAYS 1-3
     Route: 064

REACTIONS (4)
  - Maternal drugs affecting foetus [None]
  - Oligohydramnios [None]
  - Foetal death [None]
  - Abortion [None]
